FAERS Safety Report 21893299 (Version 1)
Quarter: 2023Q1

REPORT INFORMATION
  Report Type: Report from Study
  Country: CA (occurrence: CA)
  Receive Date: 20230121
  Receipt Date: 20230121
  Transmission Date: 20230417
  Serious: Yes (Other)
  Sender: FDA-Public Use
  Company Number: None

PATIENT
  Age: 57 Year
  Sex: Male
  Weight: 85 kg

DRUGS (6)
  1. METHOTREXATE SODIUM [Suspect]
     Active Substance: METHOTREXATE SODIUM
     Indication: Psoriatic arthropathy
     Dosage: 1 EVERY 1 WEEKS
     Route: 065
  2. BRODALUMAB [Suspect]
     Active Substance: BRODALUMAB
     Indication: Psoriasis
     Dosage: 1 EVERY 1 WEEKS
     Route: 058
  3. BRODALUMAB [Suspect]
     Active Substance: BRODALUMAB
     Indication: Psoriasis
     Route: 058
  4. DOVONEX [Concomitant]
     Active Substance: CALCIPOTRIENE
     Indication: Psoriasis
     Dosage: EVERY 1 DAYS
  5. AZILSARTAN KAMEDOXOMIL [Concomitant]
     Active Substance: AZILSARTAN KAMEDOXOMIL
     Indication: Hypertension
  6. BRODALUMAB [Suspect]
     Active Substance: BRODALUMAB
     Indication: Psoriasis
     Route: 058

REACTIONS (5)
  - Carpal tunnel syndrome [Recovered/Resolved]
  - Dizziness [Recovered/Resolved]
  - Psoriatic arthropathy [Recovered/Resolved]
  - Somnolence [Recovered/Resolved]
  - Therapeutic product effect incomplete [Unknown]
